FAERS Safety Report 18259306 (Version 3)
Quarter: 2020Q4

REPORT INFORMATION
  Report Type: Spontaneous
  Country: US (occurrence: US)
  Receive Date: 20200911
  Receipt Date: 20201125
  Transmission Date: 20210113
  Serious: No
  Sender: FDA-Public Use
  Company Number: US-PFIZER INC-2020350053

PATIENT
  Age: 57 Year
  Sex: Female

DRUGS (1)
  1. XELJANZ XR [Suspect]
     Active Substance: TOFACITINIB CITRATE
     Dosage: 11 MG
     Dates: start: 20200820

REACTIONS (5)
  - Oropharyngeal pain [Unknown]
  - Pyrexia [Unknown]
  - Rash [Unknown]
  - Taste disorder [Unknown]
  - Cystitis [Unknown]

NARRATIVE: CASE EVENT DATE: 20200908
